FAERS Safety Report 24566558 (Version 1)
Quarter: 2024Q4

REPORT INFORMATION
  Report Type: Spontaneous
  Country: CN (occurrence: CN)
  Receive Date: 20241030
  Receipt Date: 20241030
  Transmission Date: 20250114
  Serious: Yes (Hospitalization, Other)
  Sender: JOHNSON AND JOHNSON
  Company Number: CN-JNJFOC-20241056174

PATIENT
  Sex: Male

DRUGS (5)
  1. SIRTURO [Suspect]
     Active Substance: BEDAQUILINE FUMARATE
     Indication: Tuberculosis
     Dosage: 1ST 2 WEEKS
     Route: 048
  2. SIRTURO [Suspect]
     Active Substance: BEDAQUILINE FUMARATE
     Route: 048
  3. DELAMANID [Suspect]
     Active Substance: DELAMANID
     Indication: Tuberculosis
     Route: 065
  4. CONTEZOLID [Suspect]
     Active Substance: CONTEZOLID
     Indication: Tuberculosis
     Route: 065
  5. CONTEZOLID [Suspect]
     Active Substance: CONTEZOLID
     Route: 065

REACTIONS (3)
  - Tuberculosis [Unknown]
  - Serotonin syndrome [Unknown]
  - Blood glucose increased [Recovered/Resolved]

NARRATIVE: CASE EVENT DATE: 20240302
